FAERS Safety Report 9388906 (Version 1)
Quarter: 2013Q3

REPORT INFORMATION
  Report Type: Spontaneous
  Country: IT (occurrence: IT)
  Receive Date: 20130708
  Receipt Date: 20130708
  Transmission Date: 20140515
  Serious: Yes (Death, Hospitalization)
  Sender: FDA-Public Use
  Company Number: IT-TEVA-417082ISR

PATIENT
  Age: 51 Year
  Sex: Male

DRUGS (7)
  1. IBUPROFEN [Suspect]
  2. MELOXICAM [Concomitant]
  3. CELECOXIB [Concomitant]
  4. RISPERIDONE [Concomitant]
  5. CITALOPRAM [Concomitant]
  6. KETOROLAC [Concomitant]
  7. BROMAZEPAM [Concomitant]

REACTIONS (2)
  - Completed suicide [Fatal]
  - Overdose [Fatal]
